FAERS Safety Report 15845562 (Version 1)
Quarter: 2019Q1

REPORT INFORMATION
  Report Type: Spontaneous
  Country: IT (occurrence: IT)
  Receive Date: 20190119
  Receipt Date: 20190119
  Transmission Date: 20190417
  Serious: Yes (Other)
  Sender: FDA-Public Use
  Company Number: PHHY2019IT009921

PATIENT
  Age: 32 Year
  Sex: Female

DRUGS (2)
  1. XUZAL [Suspect]
     Active Substance: LEVOCETIRIZINE
     Indication: URTICARIA CHRONIC
     Dosage: 10 MG, QD
     Route: 048
     Dates: start: 20181115
  2. MONTELUKAST SODIUM. [Suspect]
     Active Substance: MONTELUKAST SODIUM
     Indication: URTICARIA CHRONIC
     Dosage: 10 MG, QD
     Route: 048
     Dates: start: 20181115

REACTIONS (7)
  - Agitation [Recovered/Resolved]
  - Hyperventilation [Recovered/Resolved]
  - Presyncope [Recovered/Resolved]
  - Dry mouth [Recovered/Resolved]
  - Asthenia [Recovered/Resolved]
  - Vertigo [Recovered/Resolved]
  - Somnolence [Recovered/Resolved]

NARRATIVE: CASE EVENT DATE: 20181117
